FAERS Safety Report 6964704-9 (Version None)
Quarter: 2010Q3

REPORT INFORMATION
  Report Type: 
  Country: None (occurrence: None)
  Receive Date: 20100903
  Receipt Date: 20100824
  Transmission Date: 20110219
  Serious: Yes (Other)
  Sender: FDA-Public Use
  Company Number: AU-PFIZER INC-2010106181

PATIENT
  Sex: Male

DRUGS (4)
  1. MINIPRESS [Suspect]
     Indication: HYPERTENSION
     Dosage: 1.5 MG IN THE MORNING
  2. MINIPRESS [Suspect]
     Dosage: 2 MG IN THE MORNING
     Route: 048
  3. AVAPRO [Concomitant]
     Indication: HYPERTENSION
  4. DILTIAZEM [Concomitant]
     Indication: HYPERTENSION

REACTIONS (3)
  - COLD SWEAT [None]
  - FEELING COLD [None]
  - SHOCK [None]
